FAERS Safety Report 25830857 (Version 1)
Quarter: 2025Q3

REPORT INFORMATION
  Report Type: Spontaneous
  Country: US (occurrence: None)
  Receive Date: 20250920
  Receipt Date: 20250920
  Transmission Date: 20251020
  Serious: Yes (Disabling)
  Sender: FDA-CTU
  Company Number: None

PATIENT
  Age: 60 Year
  Sex: Female
  Weight: 76.5 kg

DRUGS (4)
  1. CIPROFLOXACIN [Suspect]
     Active Substance: CIPROFLOXACIN
     Indication: Urinary tract infection
     Dosage: 1 TABLET EVERY 12 HOURS
     Dates: start: 20241004, end: 20241011
  2. Womens^s Multivitamin [Concomitant]
  3. VITAMIN D3 [Concomitant]
     Active Substance: CHOLECALCIFEROL
  4. VITAMIN C [Concomitant]
     Active Substance: ASCORBIC ACID

REACTIONS (13)
  - Rash [None]
  - Pain in extremity [None]
  - Tendon pain [None]
  - Movement disorder [None]
  - Joint stiffness [None]
  - Pain in extremity [None]
  - Tendon discomfort [None]
  - Injury [None]
  - Tendonitis [None]
  - Limb injury [None]
  - Fatigue [None]
  - Neutropenia [None]
  - White blood cell count decreased [None]

NARRATIVE: CASE EVENT DATE: 20241010
